FAERS Safety Report 4359458-9 (Version None)
Quarter: 2004Q2

REPORT INFORMATION
  Report Type: 
  Country: None (occurrence: None)
  Receive Date: 20040514
  Receipt Date: 20040514
  Transmission Date: 20050107
  Serious: Yes (Hospitalization)
  Sender: FDA-Public Use
  Company Number: None

PATIENT
  Age: 68 Year
  Sex: Male

DRUGS (7)
  1. WARFARIN SODIUM [Suspect]
     Dosage: 4 MG QD
     Dates: start: 20040302
  2. METOPROLOL [Suspect]
     Indication: HYPERTENSION
     Dosage: 50 MG BID
     Dates: start: 20040201
  3. HYDROCHLOROTHIAZIDE [Suspect]
     Indication: HYPERTENSION
     Dosage: 25 MG QD
     Dates: start: 19990101
  4. FOSINOPRIL SODIUM [Concomitant]
  5. ZOCOR [Concomitant]
  6. TYLENOL W/ CODEINE NO. 3 [Concomitant]
  7. ASPIRIN [Concomitant]

REACTIONS (1)
  - GASTROINTESTINAL HAEMORRHAGE [None]
